FAERS Safety Report 20633520 (Version 1)
Quarter: 2022Q1

REPORT INFORMATION
  Report Type: Spontaneous
  Country: US (occurrence: None)
  Receive Date: 20220319
  Receipt Date: 20220319
  Transmission Date: 20220424
  Serious: No
  Sender: FDA-Public Use
  Company Number: None

PATIENT
  Age: 66 Year
  Sex: Male
  Weight: 134.26 kg

DRUGS (25)
  1. LISINOPRIL [Suspect]
     Active Substance: LISINOPRIL
     Indication: Blood pressure increased
     Dosage: 1 TABLET DAILY ONCE PER DAY (A.M) BY MOUTH?
     Route: 048
     Dates: end: 20211201
  2. HYDRALAZINE [Concomitant]
     Active Substance: HYDRALAZINE HYDROCHLORIDE
  3. CARVEDILOL [Concomitant]
     Active Substance: CARVEDILOL
  4. TAMSULOSIN [Concomitant]
     Active Substance: TAMSULOSIN
  5. CELECOXIB [Concomitant]
     Active Substance: CELECOXIB
  6. FLUTICASONE [Concomitant]
     Active Substance: FLUTICASONE
  7. ACETAZOLAMIDE [Concomitant]
     Active Substance: ACETAZOLAMIDE
  8. ALLOPURINOL [Concomitant]
  9. AMLODIPINE [Concomitant]
     Active Substance: AMLODIPINE BESYLATE
  10. ASPIRIN [Concomitant]
     Active Substance: ASPIRIN
  11. CELECOXIB [Concomitant]
     Active Substance: CELECOXIB
  12. FLUTICASONE PROPIONATE [Concomitant]
     Active Substance: FLUTICASONE PROPIONATE
  13. GABAPENTIN [Concomitant]
     Active Substance: GABAPENTIN
  14. hydralzine [Concomitant]
  15. LEVETIRACETAM [Concomitant]
     Active Substance: LEVETIRACETAM
  16. MECLIZINE [Concomitant]
     Active Substance: MECLIZINE HYDROCHLORIDE
  17. CARVEDILOL [Concomitant]
     Active Substance: CARVEDILOL
  18. POTASSIUM CHLORIDE [Suspect]
     Active Substance: POTASSIUM CHLORIDE
  19. TAMSULOSIN [Concomitant]
  20. TRIAMTERENE AND HYDROCHLOROTHIAZIDE [Concomitant]
     Active Substance: HYDROCHLOROTHIAZIDE\TRIAMTERENE
  21. DIAZEPAM [Concomitant]
     Active Substance: DIAZEPAM
  22. FUROSEMIDE [Concomitant]
     Active Substance: FUROSEMIDE
  23. multivitamin [Concomitant]
  24. SILDENAFIL [Concomitant]
     Active Substance: SILDENAFIL
  25. LISINOPRIL [Concomitant]
     Active Substance: LISINOPRIL

REACTIONS (1)
  - Seizure [None]
